FAERS Safety Report 9862560 (Version 2)
Quarter: 2014Q1

REPORT INFORMATION
  Report Type: Spontaneous
  Country: FR (occurrence: FR)
  Receive Date: 20140203
  Receipt Date: 20140203
  Transmission Date: 20141002
  Serious: Yes (Hospitalization)
  Sender: FDA-Public Use
  Company Number: FR-PFIZER INC-2013354565

PATIENT
  Age: 86 Year
  Sex: Female

DRUGS (12)
  1. INSPRA [Suspect]
     Dosage: ONE TABLET AT NOON
     Dates: start: 20131114, end: 20131211
  2. BISOPROLOL TEVA [Concomitant]
     Dosage: ONE TABLET IN THE MORNING
  3. RILMENIDINE [Concomitant]
     Dosage: ONE TABLET IN THE EVENING
  4. KARDEGIC [Concomitant]
     Dosage: ONE SACHET IN THE MORNING
  5. TRINIPATCH [Concomitant]
     Dosage: ONE PATCH DAILY
  6. ACUILIX [Concomitant]
     Dosage: ONE TABLET IN THE MORNING
  7. LERCANIDIPINE SANDOZ [Concomitant]
     Dosage: ONE TABLET IN THE EVENING
  8. TRANSIPEG [Concomitant]
     Indication: CONSTIPATION
     Dosage: ONE SACHET DAILY
  9. INIPOMP [Concomitant]
     Dosage: 2 TABLETS IN THE EVENING
  10. DOLIPRANE [Concomitant]
     Indication: PAIN
     Dosage: 1 TO 4 G (ONE TO FOUR CAPSULES) DAILY
  11. ZOPICLONE ALTER [Concomitant]
     Dosage: AT TWO TABLETS AT BEDTIME
  12. VOLTARENE EMULGEL [Concomitant]
     Dosage: TWICE DAILY

REACTIONS (3)
  - Hyperthermia [Recovered/Resolved]
  - Laryngeal discomfort [Recovered/Resolved]
  - Inflammation [Recovered/Resolved]
